FAERS Safety Report 18716922 (Version 1)
Quarter: 2021Q1

REPORT INFORMATION
  Report Type: Spontaneous
  Country: BE (occurrence: BE)
  Receive Date: 20210108
  Receipt Date: 20210108
  Transmission Date: 20210419
  Serious: Yes (Hospitalization)
  Sender: FDA-Public Use
  Company Number: BE-MYLANLABS-2021M1000561

PATIENT
  Age: 40 Year
  Sex: Male

DRUGS (1)
  1. ATOVAQUONE/PROGUANIL [Suspect]
     Active Substance: ATOVAQUONE\PROGUANIL
     Indication: MALARIA PROPHYLAXIS
     Route: 065

REACTIONS (2)
  - Non-scarring alopecia [Unknown]
  - Anaemia megaloblastic [Unknown]
